FAERS Safety Report 7828026-6 (Version None)
Quarter: 2011Q4

REPORT INFORMATION
  Report Type: 
  Country: None (occurrence: None)
  Receive Date: 20111018
  Receipt Date: 20111003
  Transmission Date: 20120403
  Serious: Yes (Hospitalization, Other)
  Sender: FDA-Public Use
  Company Number: 2011MA013057

PATIENT
  Age: 50 Year
  Sex: Female
  Weight: 47 kg

DRUGS (12)
  1. FLUOROURACIL [Suspect]
     Indication: BREAST CANCER
     Dosage: 500 MG/M*2
  2. FLUOROURACIL [Suspect]
     Indication: METASTASES TO LUNG
     Dosage: 500 MG/M*2
  3. CYCLOPHOSPHAMIDE [Suspect]
     Indication: METASTASES TO LUNG
     Dosage: 500 MG/M*2
  4. CYCLOPHOSPHAMIDE [Suspect]
     Indication: BREAST CANCER
     Dosage: 500 MG/M*2
  5. S-1 (NO PREF. NAME) [Suspect]
     Indication: BREAST CANCER
     Dosage: 100 MG; QD
  6. S-1 (NO PREF. NAME) [Suspect]
     Indication: METASTASES TO LUNG
     Dosage: 100 MG; QD
  7. PACLITAXEL [Suspect]
     Indication: BREAST CANCER
     Dosage: 210 MG/N2
  8. PACLITAXEL [Suspect]
     Indication: METASTASES TO LUNG
     Dosage: 210 MG/N2
  9. G-CSF (GRANULOCYTE COLONG STIMULATING FACTOR) [Suspect]
     Indication: NEUTROPENIA
  10. EPIRUBICIN HYDROCHLORIDE INJECTION, 2MG/ML PACKAGED IN 200MG/100MG SIN [Suspect]
     Indication: METASTASES TO LUNG
     Dosage: 60 MG/M*2
  11. EPIRUBICIN HYDROCHLORIDE INJECTION, 2MG/ML PACKAGED IN 200MG/100MG SIN [Suspect]
     Indication: BREAST CANCER
     Dosage: 60 MG/M*2
  12. DOCETAXEL [Suspect]
     Dosage: 60 MG/M2

REACTIONS (11)
  - NEOPLASM PROGRESSION [None]
  - TOXICITY TO VARIOUS AGENTS [None]
  - NEUROPATHY PERIPHERAL [None]
  - BREAST CANCER METASTATIC [None]
  - HYPERVENTILATION [None]
  - HAEMATOTOXICITY [None]
  - MALAISE [None]
  - CONVULSION [None]
  - NAUSEA [None]
  - NEUTROPENIA [None]
  - FATIGUE [None]
